FAERS Safety Report 4964622-1 (Version None)
Quarter: 2006Q1

REPORT INFORMATION
  Report Type: 
  Country: None (occurrence: None)
  Receive Date: 20060331
  Receipt Date: 20060323
  Transmission Date: 20060701
  Serious: Yes (Hospitalization)
  Sender: FDA-Public Use
  Company Number: 200611028GDS

PATIENT
  Age: 39 Year
  Sex: Male
  Weight: 85 kg

DRUGS (3)
  1. ACTIMAX (MOXIFLOXACIN) [Suspect]
     Indication: PNEUMONIA
     Dosage: 400 MG, QD, UNK
     Dates: start: 20060213, end: 20060218
  2. NOVALGIN [Concomitant]
  3. NEXIUM [Concomitant]

REACTIONS (12)
  - ASTHENIA [None]
  - DIFFICULTY IN WALKING [None]
  - DYSSTASIA [None]
  - ERYTHEMA [None]
  - FUCHS' SYNDROME [None]
  - GINGIVITIS [None]
  - NAUSEA [None]
  - OEDEMA [None]
  - PRURITUS [None]
  - STEVENS-JOHNSON SYNDROME [None]
  - STOMATITIS [None]
  - URTICARIA [None]
